FAERS Safety Report 7124468-5 (Version None)
Quarter: 2010Q4

REPORT INFORMATION
  Report Type: 
  Country: None (occurrence: None)
  Receive Date: 20101126
  Receipt Date: 20101117
  Transmission Date: 20110411
  Serious: Yes (Hospitalization)
  Sender: FDA-Public Use
  Company Number: CA-ELI_LILLY_AND_COMPANY-CA201011004851

PATIENT
  Age: 70 Year
  Sex: Female

DRUGS (5)
  1. FORTEO [Suspect]
     Indication: OSTEOPOROSIS
     Dosage: 20 UG, DAILY (1/D)
     Route: 058
     Dates: start: 20090128
  2. PREDNISONE [Concomitant]
  3. LEVOTHYROXINE SODIUM [Concomitant]
  4. LASIX [Concomitant]
  5. VENTOLIN [Concomitant]
     Route: 055

REACTIONS (4)
  - ATRIAL FIBRILLATION [None]
  - ESCHERICHIA INFECTION [None]
  - NEPHROLITHIASIS [None]
  - PNEUMONIA [None]
